FAERS Safety Report 18423792 (Version 2)
Quarter: 2020Q4

REPORT INFORMATION
  Report Type: Report from Study
  Country: CO (occurrence: CO)
  Receive Date: 20201024
  Receipt Date: 20201111
  Transmission Date: 20210114
  Serious: Yes (Hospitalization)
  Sender: FDA-Public Use
  Company Number: NVSC2020CO268941

PATIENT
  Sex: Female

DRUGS (3)
  1. REVOLADE [Suspect]
     Active Substance: ELTROMBOPAG
     Indication: IMMUNE THROMBOCYTOPENIA
     Dosage: 50 MG, QD
     Route: 048
     Dates: start: 202009
  2. PREDNISOLONE. [Concomitant]
     Active Substance: PREDNISOLONE
     Indication: IMMUNE THROMBOCYTOPENIA
     Dosage: 75 MG, QD (APPROXIMATELY 3 YEARS AGO)
     Route: 048
  3. REVOLADE [Suspect]
     Active Substance: ELTROMBOPAG
     Dosage: 50 MG, QD (24 HOURS)
     Route: 048
     Dates: start: 20201005

REACTIONS (7)
  - Paraesthesia [Unknown]
  - Eye pain [Recovered/Resolved]
  - Hypoaesthesia [Recovered/Resolved]
  - Pruritus [Unknown]
  - Headache [Recovered/Resolved]
  - Rash [Recovered/Resolved]
  - Product administration error [Unknown]
